FAERS Safety Report 4496469-7 (Version None)
Quarter: 2004Q4

REPORT INFORMATION
  Report Type: 
  Country: None (occurrence: None)
  Receive Date: 20041109
  Receipt Date: 20041108
  Transmission Date: 20050328
  Serious: Yes (Life-Threatening, Hospitalization)
  Sender: FDA-Public Use
  Company Number: PHRM2004FR03308

PATIENT
  Age: 67 Year
  Sex: Male

DRUGS (2)
  1. NISIS [Suspect]
     Indication: HYPERTENSION
     Dosage: 80 MG, QD
     Route: 048
  2. TAREG [Suspect]
     Indication: HYPERTENSION
     Dosage: 80 MG, QD
     Route: 048
     Dates: start: 20000101

REACTIONS (4)
  - ACUTE RESPIRATORY FAILURE [None]
  - INTERSTITIAL LUNG DISEASE [None]
  - PNEUMONIA CHLAMYDIAL [None]
  - RESPIRATORY FAILURE [None]
